FAERS Safety Report 4748515-0 (Version None)
Quarter: 2005Q3

REPORT INFORMATION
  Report Type: 
  Country: None (occurrence: None)
  Receive Date: 20050818
  Receipt Date: 20050818
  Transmission Date: 20060218
  Serious: No
  Sender: FDA-Public Use
  Company Number: None

PATIENT
  Age: 58 Year
  Sex: Male
  Weight: 85 kg

DRUGS (1)
  1. TOBRAMYCIN [Suspect]
     Indication: LUNG INFECTION
     Dosage: 300 MG   TWICE A DAY   RESPIRATOR
     Route: 055
     Dates: start: 20050714, end: 20050716

REACTIONS (2)
  - HEART RATE INCREASED [None]
  - OXYGEN SATURATION DECREASED [None]
